FAERS Safety Report 10094038 (Version 2)
Quarter: 2014Q2

REPORT INFORMATION
  Report Type: Spontaneous
  Country: US (occurrence: US)
  Receive Date: 20140422
  Receipt Date: 20140522
  Transmission Date: 20141212
  Serious: Yes (Other)
  Sender: FDA-Public Use
  Company Number: US-ROCHE-1387810

PATIENT
  Age: 51 Year
  Sex: 0

DRUGS (6)
  1. XOLAIR [Suspect]
     Indication: ASTHMA
     Route: 065
  2. XOLAIR [Suspect]
     Indication: RHINITIS ALLERGIC
  3. DULERA [Concomitant]
     Indication: ASTHMA
     Route: 065
     Dates: start: 20130117
  4. ALBUTEROL [Concomitant]
     Indication: ASTHMA
     Route: 065
     Dates: start: 20020813
  5. SINGULAIR [Concomitant]
     Indication: ASTHMA
     Route: 048
     Dates: start: 20020813
  6. XYZAL [Concomitant]
     Indication: RHINITIS ALLERGIC
     Route: 048
     Dates: start: 20130117

REACTIONS (3)
  - Dyspnoea [Unknown]
  - Pruritus generalised [Unknown]
  - Anaphylactic reaction [Unknown]
